FAERS Safety Report 16590936 (Version 1)
Quarter: 2019Q3

REPORT INFORMATION
  Report Type: Other
  Country: IT (occurrence: IT)
  Receive Date: 20190718
  Receipt Date: 20190718
  Transmission Date: 20191004
  Serious: Yes (Hospitalization, Other)
  Sender: FDA-Public Use
  Company Number: IT-ASPEN-GLO2017IT004165

PATIENT
  Age: 36 Year
  Sex: Male

DRUGS (10)
  1. NANDROLONE DECANOATE. [Suspect]
     Active Substance: NANDROLONE DECANOATE
     Indication: MUSCLE BUILDING THERAPY
     Route: 065
  2. VITAMIN A [Suspect]
     Active Substance: VITAMIN A
     Indication: MUSCLE BUILDING THERAPY
     Dosage: 40000 IU, QD
     Route: 065
  3. CHORIONIC GONADOTROPHIN [Suspect]
     Active Substance: CHORIOGONADOTROPIN ALFA
     Indication: MUSCLE BUILDING THERAPY
     Route: 065
  4. SOMATROPIN. [Suspect]
     Active Substance: SOMATROPIN
     Indication: MUSCLE BUILDING THERAPY
     Dosage: UNK
     Route: 030
  5. TRENBOLONE [Suspect]
     Active Substance: TRENBOLONE
     Indication: MUSCLE BUILDING THERAPY
     Dosage: TAKEN FROM 2 TO 3 TIMES PER WEEK
     Route: 030
  6. TESTOSTERONE. [Suspect]
     Active Substance: TESTOSTERONE
     Indication: MUSCLE BUILDING THERAPY
     Dosage: UNK
     Route: 065
  7. INSULIN [Suspect]
     Active Substance: INSULIN NOS
     Indication: MUSCLE BUILDING THERAPY
     Dosage: 5 IU, QD
     Route: 058
  8. HUMAN GROWTH HORMONE, RECOMBINANT [Suspect]
     Active Substance: SOMATROPIN
     Indication: MUSCLE BUILDING THERAPY
     Dosage: 4.8 IU, QD
     Route: 030
  9. TESTOVIS (METHYLTESTOSTERONE) [Suspect]
     Active Substance: METHYLTESTOSTERONE
     Indication: MUSCLE BUILDING THERAPY
     Dosage: TAKEN FROM 2 TO 3 TIMES PER WEEK
     Route: 030
  10. TESTOVIRON [Suspect]
     Active Substance: TESTOSTERONE
     Indication: MUSCLE BUILDING THERAPY
     Route: 030

REACTIONS (5)
  - Inappropriate schedule of product administration [Unknown]
  - Intracranial pressure increased [Unknown]
  - Drug abuse [Unknown]
  - Product administration error [Unknown]
  - Off label use [Unknown]
